FAERS Safety Report 14854855 (Version 1)
Quarter: 2018Q2

REPORT INFORMATION
  Report Type: Spontaneous
  Country: US (occurrence: US)
  Receive Date: 20180507
  Receipt Date: 20180507
  Transmission Date: 20180711
  Serious: No
  Sender: FDA-Public Use
  Company Number: US-ROCHE-1911081

PATIENT
  Sex: Female

DRUGS (2)
  1. ESBRIET [Suspect]
     Active Substance: PIRFENIDONE
     Indication: IDIOPATHIC PULMONARY FIBROSIS
     Route: 048
     Dates: start: 201606
  2. ESBRIET [Suspect]
     Active Substance: PIRFENIDONE
     Dosage: 2 PILLS
     Route: 048

REACTIONS (4)
  - Rash pruritic [Recovered/Resolved]
  - Photosensitivity reaction [Unknown]
  - Insomnia [Unknown]
  - Fatigue [Unknown]
